FAERS Safety Report 6699844-5 (Version None)
Quarter: 2010Q2

REPORT INFORMATION
  Report Type: 
  Country: None (occurrence: None)
  Receive Date: 20100427
  Receipt Date: 20100427
  Transmission Date: 20101027
  Serious: No
  Sender: FDA-Public Use
  Company Number: None

PATIENT
  Sex: Male
  Weight: 101.1521 kg

DRUGS (1)
  1. ANDRODERM [Suspect]
     Dosage: 5 MG/24 HR. DAILY TRANSDERMAL
     Route: 062
     Dates: start: 20060718, end: 20060913

REACTIONS (1)
  - RASH [None]
